FAERS Safety Report 9199343 (Version 2)
Quarter: 2013Q2

REPORT INFORMATION
  Report Type: Spontaneous
  Country: US (occurrence: US)
  Receive Date: 20130329
  Receipt Date: 20130408
  Transmission Date: 20140414
  Serious: No
  Sender: FDA-Public Use
  Company Number: US-009507513-1303USA013260

PATIENT
  Sex: Female
  Weight: 81.63 kg

DRUGS (5)
  1. MIRALAX [Suspect]
     Indication: CONSTIPATION
     Dosage: UNK, UNKNOWN
     Route: 048
     Dates: start: 20130201, end: 20130228
  2. MIRALAX [Suspect]
     Dosage: UNK, UNKNOWN
     Route: 048
     Dates: start: 20130201, end: 20130213
  3. METFORMIN [Concomitant]
     Indication: DIABETES MELLITUS
     Dosage: UNK, UNKNOWN
  4. JANUVIA [Concomitant]
     Indication: DIABETES MELLITUS
     Dosage: UNK, UNKNOWN
  5. TIKOSYN [Concomitant]
     Indication: ATRIAL FIBRILLATION
     Dosage: UNK, UNKNOWN

REACTIONS (1)
  - Throat irritation [Unknown]
